FAERS Safety Report 5099129-7 (Version None)
Quarter: 2006Q3

REPORT INFORMATION
  Report Type: 
  Country: None (occurrence: None)
  Receive Date: 20060731
  Receipt Date: 20051130
  Transmission Date: 20061208
  Serious: Yes (Other)
  Sender: FDA-Public Use
  Company Number: 219577

PATIENT
  Sex: Female

DRUGS (3)
  1. AVASTIN [Suspect]
     Indication: BREAST CANCER
     Dates: start: 20040601
  2. HERCEPTIN [Suspect]
     Indication: BREAST CANCER
     Dates: start: 20000901
  3. CAMPTOSAR [Concomitant]

REACTIONS (3)
  - ASCITES [None]
  - BLOOD ALKALINE PHOSPHATASE INCREASED [None]
  - JAUNDICE [None]
